FAERS Safety Report 18808877 (Version 1)
Quarter: 2021Q1

REPORT INFORMATION
  Report Type: Spontaneous
  Country: BR (occurrence: BR)
  Receive Date: 20210129
  Receipt Date: 20210129
  Transmission Date: 20210419
  Serious: Yes (Other)
  Sender: FDA-Public Use
  Company Number: BR-PFIZER INC-2021063441

PATIENT
  Sex: Female

DRUGS (1)
  1. ZOLOFT [Suspect]
     Active Substance: SERTRALINE HYDROCHLORIDE
     Dosage: UNK

REACTIONS (19)
  - Hallucination [Unknown]
  - Dizziness [Unknown]
  - Migraine [Unknown]
  - Libido decreased [Unknown]
  - Dysentery [Unknown]
  - Nervousness [Not Recovered/Not Resolved]
  - Confusional state [Unknown]
  - Blood cholesterol increased [Unknown]
  - Anxiety [Unknown]
  - Blood glucose decreased [Unknown]
  - Conversion disorder [Unknown]
  - Alopecia [Unknown]
  - Muscle spasms [Unknown]
  - Weight decreased [Unknown]
  - Constipation [Unknown]
  - Headache [Unknown]
  - Blood glucose increased [Unknown]
  - Abdominal pain [Unknown]
  - Hyperhidrosis [Unknown]
